FAERS Safety Report 5822208-0 (Version None)
Quarter: 2008Q3

REPORT INFORMATION
  Report Type: 
  Country: None (occurrence: None)
  Receive Date: 20080721
  Receipt Date: 20080707
  Transmission Date: 20090109
  Serious: Yes (Hospitalization)
  Sender: FDA-Public Use
  Company Number: GXKR2008GB06532

PATIENT
  Age: 11 Year
  Sex: Male

DRUGS (1)
  1. ACETAMINOPHEN [Suspect]
     Indication: NASOPHARYNGITIS
     Dosage: 500 MG, 6-8 H FOR 2 DAYS, UNKNOWN

REACTIONS (8)
  - ANION GAP INCREASED [None]
  - CONVULSION [None]
  - METABOLIC ACIDOSIS [None]
  - METABOLIC DISORDER [None]
  - PYREXIA [None]
  - RENAL IMPAIRMENT [None]
  - TRANSAMINASES INCREASED [None]
  - VOMITING [None]
